FAERS Safety Report 8175335-X (Version None)
Quarter: 2012Q1

REPORT INFORMATION
  Report Type: 
  Country: None (occurrence: None)
  Receive Date: 20120229
  Receipt Date: 20120224
  Transmission Date: 20120608
  Serious: Yes (Death, Hospitalization, Other)
  Sender: FDA-Public Use
  Company Number: PHEH2008US04339

PATIENT
  Sex: Female
  Weight: 93.7 kg

DRUGS (38)
  1. ARMODAFINIL [Concomitant]
  2. SYNTHROID [Concomitant]
  3. BLOOD CELLS, PACKED HUMAN [Concomitant]
  4. MELPHALAN [Concomitant]
  5. DOXORUBICIN ^BIGMAR^ [Concomitant]
  6. COUMADIN [Concomitant]
  7. ALBUTEROL [Concomitant]
  8. LEVAQUIN [Concomitant]
  9. AREDIA [Suspect]
     Dosage: 90 MG, QMO
  10. FOSAMAX [Suspect]
  11. DECADRON [Concomitant]
  12. CYCLOSPORINE [Concomitant]
  13. PREDNISONE TAB [Concomitant]
  14. PRILOSEC [Concomitant]
  15. VINCRISTINE [Concomitant]
  16. ADRIAMYCIN PFS [Concomitant]
  17. LASIX [Concomitant]
  18. THALIDOMIDE [Concomitant]
  19. CHEMOTHERAPEUTICS NOS [Concomitant]
  20. RADIATION THERAPY [Concomitant]
     Dates: start: 19990101
  21. DEXAMETHASONE [Concomitant]
  22. INTERFERON ALFA [Concomitant]
  23. FERROUS SULFATE TAB [Concomitant]
  24. OXYCODONE HCL [Concomitant]
  25. DARVOCET-N 50 [Concomitant]
  26. CYTOXAN [Concomitant]
  27. PROCRIT                            /00909301/ [Concomitant]
  28. VITAMIN B6 [Concomitant]
  29. CALTRATE +D [Concomitant]
  30. TAXOL [Concomitant]
  31. CALCIUM [Concomitant]
  32. FOLIC ACID [Concomitant]
  33. ZOMETA [Suspect]
     Indication: MULTIPLE MYELOMA
  34. GENASENSE [Concomitant]
  35. AUGMENTIN '125' [Concomitant]
  36. LEVOXYL [Concomitant]
  37. FEMARA [Concomitant]
  38. FAMVIR                                  /UNK/ [Concomitant]

REACTIONS (87)
  - TRANSIENT ISCHAEMIC ATTACK [None]
  - OSTEONECROSIS OF JAW [None]
  - TENDERNESS [None]
  - TOOTH DISORDER [None]
  - DENTAL PLAQUE [None]
  - VENOUS THROMBOSIS LIMB [None]
  - OEDEMA PERIPHERAL [None]
  - DECUBITUS ULCER [None]
  - OSTEOPOROSIS [None]
  - CHRONIC OBSTRUCTIVE PULMONARY DISEASE [None]
  - CARDIAC FAILURE CONGESTIVE [None]
  - ARRHYTHMIA [None]
  - GRANULOMA [None]
  - DERMATITIS [None]
  - HYPERTENSION [None]
  - CONSTIPATION [None]
  - OSTEOARTHRITIS [None]
  - NAUSEA [None]
  - PYREXIA [None]
  - EXPOSED BONE IN JAW [None]
  - ABDOMINAL HERNIA [None]
  - MALLORY-WEISS SYNDROME [None]
  - OVARIAN CYST [None]
  - OSTEOPENIA [None]
  - CEREBROVASCULAR ACCIDENT [None]
  - MACULAR DEGENERATION [None]
  - LYMPHOMA [None]
  - SMALL INTESTINAL OBSTRUCTION [None]
  - HAEMORRHOIDS [None]
  - URINARY TRACT INFECTION [None]
  - WOUND INFECTION [None]
  - INJURY [None]
  - SWELLING [None]
  - ATELECTASIS [None]
  - OESOPHAGEAL ULCER [None]
  - DEAFNESS [None]
  - URETHRAL CARUNCLE [None]
  - PARAESTHESIA [None]
  - INFECTED SKIN ULCER [None]
  - ELECTROLYTE IMBALANCE [None]
  - TOOTH ABSCESS [None]
  - NEURODEGENERATIVE DISORDER [None]
  - MONOPARESIS [None]
  - MUSCULAR WEAKNESS [None]
  - ADENOMATOUS POLYPOSIS COLI [None]
  - PNEUMONIA [None]
  - EROSIVE OESOPHAGITIS [None]
  - ALANINE AMINOTRANSFERASE INCREASED [None]
  - TRICUSPID VALVE INCOMPETENCE [None]
  - DIARRHOEA [None]
  - ATRIOVENTRICULAR BLOCK FIRST DEGREE [None]
  - PANCYTOPENIA [None]
  - CARDIOMEGALY [None]
  - OESOPHAGEAL POLYP [None]
  - RECTAL HAEMORRHAGE [None]
  - PULMONARY OEDEMA [None]
  - CONVULSION [None]
  - ANAEMIA [None]
  - COMPRESSION FRACTURE [None]
  - ANXIETY [None]
  - BREATH ODOUR [None]
  - WEIGHT DECREASED [None]
  - LUNG CANCER METASTATIC [None]
  - PLEURAL EFFUSION [None]
  - CHOLELITHIASIS [None]
  - OSTEOLYSIS [None]
  - MITRAL VALVE INCOMPETENCE [None]
  - NEOPLASM PROGRESSION [None]
  - PAIN [None]
  - ANHEDONIA [None]
  - TOOTH INFECTION [None]
  - DENTAL CARIES [None]
  - THROMBOCYTOPENIA [None]
  - COAGULOPATHY [None]
  - HAEMATOCHEZIA [None]
  - PULMONARY CONGESTION [None]
  - ANAL ULCER [None]
  - SKIN ULCER [None]
  - NEOPLASM MALIGNANT [None]
  - VOMITING [None]
  - DISABILITY [None]
  - MYELOMA RECURRENCE [None]
  - CONJUNCTIVITIS VIRAL [None]
  - DYSPNOEA [None]
  - GASTRIC POLYPS [None]
  - DUODENAL POLYP [None]
  - FUNGAL INFECTION [None]
